FAERS Safety Report 5258497-3 (Version None)
Quarter: 2007Q1

REPORT INFORMATION
  Report Type: 
  Country: None (occurrence: None)
  Receive Date: 20070308
  Receipt Date: 20070301
  Transmission Date: 20070707
  Serious: Yes (Death, Life-Threatening)
  Sender: FDA-Public Use
  Company Number: US-BAYER-200616054BWH

PATIENT
  Sex: Female

DRUGS (3)
  1. TRASYLOL [Suspect]
     Indication: CORONARY ARTERY BYPASS
     Dosage: UNIT DOSE: 10000 KIU
     Route: 042
     Dates: start: 20060101
  2. TRASYLOL [Suspect]
     Dosage: UNIT DOSE: 2000000 KIU
     Route: 042
     Dates: start: 20060101
  3. PLAVIX [Concomitant]

REACTIONS (3)
  - CORONARY ARTERY THROMBOSIS [None]
  - POST PROCEDURAL COMPLICATION [None]
  - VENTRICULAR FIBRILLATION [None]
